FAERS Safety Report 21385043 (Version 1)
Quarter: 2022Q3

REPORT INFORMATION
  Report Type: Spontaneous
  Country: CN (occurrence: CN)
  Receive Date: 20220928
  Receipt Date: 20220928
  Transmission Date: 20221027
  Serious: Yes (Death, Life-Threatening, Hospitalization, Other)
  Sender: FDA-Public Use
  Company Number: CN-CELGENE-CHN-20200309867

PATIENT
  Age: 68 Year
  Sex: Male
  Weight: 63 kg

DRUGS (19)
  1. ABRAXANE [Suspect]
     Active Substance: PACLITAXEL
     Indication: Non-small cell lung cancer
     Dosage: 100 MICROGRAM/SQ. METER
     Route: 042
     Dates: start: 20191203, end: 20200228
  2. ABRAXANE [Suspect]
     Active Substance: PACLITAXEL
     Dosage: 163 MILLIGRAM?DURATION TEXT : CYCLE 1 DAY 1
     Route: 042
     Dates: start: 20191203, end: 20191203
  3. ABRAXANE [Suspect]
     Active Substance: PACLITAXEL
     Dosage: 163 MILLIGRAM?DURATION TEXT : CYCLE 1 DAY 15
     Route: 042
     Dates: start: 20191217, end: 20191217
  4. ABRAXANE [Suspect]
     Active Substance: PACLITAXEL
     Dosage: 164 MILLIGRAM?DURATION TEXT : CYCLE 2 DAY 1
     Route: 042
     Dates: start: 20191224, end: 20191224
  5. ABRAXANE [Suspect]
     Active Substance: PACLITAXEL
     Dosage: 164 MILLIGRAM?DURATION TEXT : CYCLE 2 DAY 15
     Route: 042
     Dates: start: 20200107, end: 20200107
  6. ABRAXANE [Suspect]
     Active Substance: PACLITAXEL
     Dosage: 164 MILLIGRAM?DURATION TEXT : CYCLE 3 DAY 1
     Route: 042
     Dates: start: 20200115, end: 20200115
  7. ABRAXANE [Suspect]
     Active Substance: PACLITAXEL
     Dosage: DURATION TEXT : CYCLE 4 DAY 1
     Route: 042
     Dates: start: 20200205, end: 20200205
  8. ABRAXANE [Suspect]
     Active Substance: PACLITAXEL
     Dosage: 163 MILLIGRAM?DURATION TEXT : CYCLE 4 DAY 8
     Route: 042
     Dates: start: 20200212, end: 20200212
  9. ABRAXANE [Suspect]
     Active Substance: PACLITAXEL
     Dosage: 164 MILLIGRAM?DURATION TEXT : CYCLE 4 DAY 8
     Route: 042
     Dates: start: 20200219, end: 20200219
  10. ABRAXANE [Suspect]
     Active Substance: PACLITAXEL
     Dosage: 164 MILLIGRAM?DURATION TEXT : CYCLE 5 DAY 1
     Route: 042
     Dates: start: 20200228, end: 20200228
  11. CARBOPLATIN [Suspect]
     Active Substance: CARBOPLATIN
     Indication: Non-small cell lung cancer
     Dosage: AUC=5
     Route: 042
     Dates: start: 20191203, end: 20200228
  12. CARBOPLATIN [Suspect]
     Active Substance: CARBOPLATIN
     Dosage: 530 MILLIGRAM?DURATION TEXT : CYCLE 1 DAY 1
     Route: 042
     Dates: start: 20191203, end: 20191203
  13. CARBOPLATIN [Suspect]
     Active Substance: CARBOPLATIN
     Dosage: 590 MILLIGRAM?DURATION TEXT : CYCLE 2 DAY 1
     Route: 042
     Dates: start: 20191224, end: 20191224
  14. CARBOPLATIN [Suspect]
     Active Substance: CARBOPLATIN
     Dosage: 590 MILLIGRAM?DURATION TEXT : CYCLE 5 DAY 1
     Route: 042
     Dates: start: 20200228, end: 20200228
  15. SERPLULIMAB [Suspect]
     Active Substance: SERPLULIMAB
     Indication: Non-small cell lung cancer
     Dosage: 4.5 MILLIGRAM/KILOGRAM
     Route: 042
     Dates: start: 20191203, end: 20200228
  16. GRANULOCYTE COLONY-STIMULATING FACTOR NOS [Concomitant]
     Active Substance: GRANULOCYTE COLONY-STIMULATING FACTOR NOS
     Indication: Leukopenia
     Dosage: 300 MICROGRAM
     Route: 058
     Dates: start: 20200302, end: 20200304
  17. GRANULOCYTE COLONY-STIMULATING FACTOR NOS [Concomitant]
     Active Substance: GRANULOCYTE COLONY-STIMULATING FACTOR NOS
     Dosage: 300 MICROGRAM
     Route: 058
     Dates: start: 20200308, end: 20200313
  18. Recombinant human thrombopoietin injection [Concomitant]
     Indication: Thrombocytopenia
     Dosage: 15000 IU (INTERNATIONAL UNIT)
     Route: 058
     Dates: start: 20200305
  19. Sheng Xue Ban [Concomitant]
     Indication: Thrombocytopenia
     Dosage: 5.4 GRAM
     Route: 048
     Dates: start: 20200305

REACTIONS (2)
  - Immune-mediated enterocolitis [Fatal]
  - Immune thrombocytopenia [Not Recovered/Not Resolved]

NARRATIVE: CASE EVENT DATE: 20200224
